FAERS Safety Report 10033886 (Version 2)
Quarter: 2014Q2

REPORT INFORMATION
  Report Type: Spontaneous
  Country: US (occurrence: US)
  Receive Date: 20140325
  Receipt Date: 20140401
  Transmission Date: 20141212
  Serious: Yes (Hospitalization)
  Sender: FDA-Public Use
  Company Number: US-009507513-1403USA008243

PATIENT
  Age: 59 Year
  Sex: Male

DRUGS (7)
  1. PROSCAR [Suspect]
     Dosage: 5 MG, DAILY
     Route: 048
  2. COUMADIN [Concomitant]
  3. LIPITOR [Concomitant]
  4. NORVASC [Concomitant]
  5. FLOMAX (TAMSULOSIN HYDROCHLORIDE) [Concomitant]
  6. HALDOL [Concomitant]
  7. COGENTIN [Concomitant]

REACTIONS (5)
  - Deep vein thrombosis [Not Recovered/Not Resolved]
  - Wrong technique in drug usage process [Unknown]
  - Mental status changes [Unknown]
  - Parkinson^s disease [Unknown]
  - Dysphagia [Recovered/Resolved]
